FAERS Safety Report 10365854 (Version 2)
Quarter: 2014Q3

REPORT INFORMATION
  Report Type: Spontaneous
  Country: US (occurrence: US)
  Receive Date: 20140806
  Receipt Date: 20140806
  Transmission Date: 20150326
  Serious: Yes (Death, Hospitalization, Other)
  Sender: FDA-Public Use
  Company Number: US-AMGEN-USASP2014054085

PATIENT
  Age: 92 Year
  Sex: Female

DRUGS (1)
  1. PROLIA [Suspect]
     Active Substance: DENOSUMAB
     Indication: OSTEOPOROSIS POSTMENOPAUSAL
     Dosage: 60 MG/ML, Q6MO
     Route: 065
     Dates: end: 20140313

REACTIONS (21)
  - Cardiac failure acute [Fatal]
  - Acute myocardial infarction [Fatal]
  - Coma [Unknown]
  - Malnutrition [Unknown]
  - Urine output decreased [Unknown]
  - Somnolence [Unknown]
  - Tenderness [Unknown]
  - Vomiting [Unknown]
  - Dry skin [Unknown]
  - Decreased appetite [Unknown]
  - Decubitus ulcer [Unknown]
  - Dry mouth [Unknown]
  - Altered state of consciousness [Unknown]
  - Skin warm [Unknown]
  - Abdominal discomfort [Unknown]
  - Multi-organ failure [Unknown]
  - Starvation [Unknown]
  - Cachexia [Unknown]
  - Dehydration [Unknown]
  - Constipation [Unknown]
  - Supraventricular extrasystoles [Unknown]

NARRATIVE: CASE EVENT DATE: 201405
